FAERS Safety Report 8460829-X (Version None)
Quarter: 2012Q2

REPORT INFORMATION
  Report Type: 
  Country: None (occurrence: None)
  Receive Date: 20120624
  Receipt Date: 20120621
  Transmission Date: 20120825
  Serious: Yes (Death, Other)
  Sender: FDA-Public Use
  Company Number: US-AMGEN-USASP2011066021

PATIENT
  Age: 75 Year
  Sex: Male
  Weight: 79.8 kg

DRUGS (20)
  1. ALLEGRA [Concomitant]
     Dosage: UNK
  2. PREVALITE [Concomitant]
     Dosage: UNK
  3. METFORMIN HCL [Concomitant]
     Dosage: UNK
  4. LANTUS [Concomitant]
     Dosage: UNK
  5. METOPROLOL TARTRATE [Concomitant]
     Dosage: UNK
  6. CALTRATE                           /00751519/ [Concomitant]
     Dosage: UNK
  7. ENBREL [Suspect]
     Indication: RHEUMATOID ARTHRITIS
     Dosage: 50 MG, QWK
     Route: 058
     Dates: start: 20060112, end: 20111024
  8. ASPIRIN [Concomitant]
     Dosage: UNK
  9. GLYBURIDE [Concomitant]
     Dosage: UNK
  10. PRILOSEC [Concomitant]
     Dosage: UNK
  11. VICODIN [Concomitant]
     Dosage: UNK
  12. COUMADIN [Concomitant]
     Dosage: UNK
  13. ENTOCORT EC [Concomitant]
     Dosage: UNK
  14. FISH OIL [Concomitant]
     Dosage: UNK
  15. FOLIC ACID [Concomitant]
     Dosage: UNK
  16. LISINOPRIL [Concomitant]
     Dosage: UNK
  17. METHOTREXATE [Concomitant]
     Indication: RHEUMATOID ARTHRITIS
     Dosage: 10 MG, QWK
     Route: 048
     Dates: start: 20051109, end: 20111024
  18. HYDROCHLOROTHIAZIDE [Concomitant]
     Dosage: UNK
  19. FERROUS SULFATE TAB [Concomitant]
     Dosage: UNK
  20. FLONASE [Concomitant]
     Dosage: UNK

REACTIONS (7)
  - BACK PAIN [None]
  - HEPATIC MASS [None]
  - WEIGHT DECREASED [None]
  - PULMONARY MASS [None]
  - BONE LESION [None]
  - METASTATIC MALIGNANT MELANOMA [None]
  - GAIT DISTURBANCE [None]
